FAERS Safety Report 7290808-X (Version None)
Quarter: 2011Q1

REPORT INFORMATION
  Report Type: 
  Country: None (occurrence: None)
  Receive Date: 20110214
  Receipt Date: 20100604
  Transmission Date: 20110831
  Serious: Yes (Other)
  Sender: FDA-Public Use
  Company Number: GR-ASTRAZENECA-2010SE26373

PATIENT
  Age: 72 Year
  Sex: Male

DRUGS (4)
  1. PROPOFOL [Suspect]
     Indication: INDUCTION AND MAINTENANCE OF ANAESTHESIA
     Route: 042
  2. PROPOFOL [Suspect]
     Indication: INTESTINAL RESECTION
     Route: 042
  3. PROPOFOL [Suspect]
     Dosage: 2-6 MG/KG/H
     Route: 041
  4. PROPOFOL [Suspect]
     Dosage: 2-6 MG/KG/H
     Route: 041

REACTIONS (1)
  - PROPOFOL INFUSION SYNDROME [None]
